FAERS Safety Report 13930430 (Version 1)
Quarter: 2017Q3

REPORT INFORMATION
  Report Type: Other
  Country: US (occurrence: US)
  Receive Date: 20170901
  Receipt Date: 20170901
  Transmission Date: 20171127
  Serious: Yes (Other)
  Sender: FDA-Public Use
  Company Number: US-THE PROACTIV LLC-2025472

PATIENT
  Age: 17 Year
  Sex: Male

DRUGS (3)
  1. PROACTIV RENEWING CLEANSER [Suspect]
     Active Substance: BENZOYL PEROXIDE
     Indication: ACNE
     Route: 061
     Dates: start: 20170625, end: 20170630
  2. PROACTIV REPAIRING TREATMENT [Suspect]
     Active Substance: BENZOYL PEROXIDE
     Route: 061
     Dates: start: 20170625, end: 20170630
  3. PROACTIV SOLUTION ADVANCED DAILY OIL CONTROL [Suspect]
     Active Substance: SALICYLIC ACID
     Route: 061
     Dates: start: 20170625, end: 20170630

REACTIONS (3)
  - Erythema [Recovered/Resolved]
  - Skin disorder [Recovered/Resolved]
  - Hypersensitivity [None]

NARRATIVE: CASE EVENT DATE: 20170628
